FAERS Safety Report 9789331 (Version 2)
Quarter: 2014Q1

REPORT INFORMATION
  Report Type: Spontaneous
  Country: US (occurrence: US)
  Receive Date: 20131231
  Receipt Date: 20140305
  Transmission Date: 20141002
  Serious: Yes (Other)
  Sender: FDA-Public Use
  Company Number: US-JNJFOC-20131211701

PATIENT
  Age: 39 Year
  Sex: 0
  Weight: 49.9 kg

DRUGS (8)
  1. EXTRA STRENGTH TYLENOL [Suspect]
     Indication: INFLUENZA
     Route: 065
     Dates: start: 200904, end: 200904
  2. EXTRA STRENGTH TYLENOL [Suspect]
     Indication: PAIN
     Route: 065
     Dates: start: 200904, end: 200904
  3. EXTRA STRENGTH TYLENOL [Suspect]
     Indication: PYREXIA
     Route: 065
     Dates: start: 200904, end: 200904
  4. TYLENOL REGULAR STRENGTH [Suspect]
     Route: 065
  5. TYLENOL REGULAR STRENGTH [Suspect]
     Indication: PRODUCT USED FOR UNKNOWN INDICATION
     Route: 065
  6. THERAFLU [Suspect]
     Indication: INFLUENZA
     Dosage: AS INSTRUCTED ON BOTTLE
     Route: 065
  7. THERAFLU [Suspect]
     Indication: PAIN
     Dosage: AS INSTRUCTED ON BOTTLE
     Route: 065
  8. THERAFLU [Suspect]
     Indication: PYREXIA
     Dosage: AS INSTRUCTED ON BOTTLE
     Route: 065

REACTIONS (1)
  - Acute hepatic failure [Unknown]
